FAERS Safety Report 8246371-X (Version None)
Quarter: 2012Q1

REPORT INFORMATION
  Report Type: 
  Country: None (occurrence: None)
  Receive Date: 20120330
  Receipt Date: 20120320
  Transmission Date: 20120608
  Serious: Yes (Other)
  Sender: FDA-Public Use
  Company Number: US-ASTELLAS-2012US003052

PATIENT
  Age: 68 Year
  Sex: Male

DRUGS (2)
  1. VESICARE [Suspect]
     Indication: MICTURITION URGENCY
     Dosage: 5 MG, UID/QD
     Route: 048
  2. VESICARE [Suspect]
     Indication: NOCTURIA
     Dosage: 5 MG, QOD
     Route: 048

REACTIONS (5)
  - INAPPROPRIATE SCHEDULE OF DRUG ADMINISTRATION [None]
  - OESOPHAGEAL STENOSIS [None]
  - THERAPEUTIC RESPONSE UNEXPECTED [None]
  - HIATUS HERNIA [None]
  - OFF LABEL USE [None]
